FAERS Safety Report 4498975-8 (Version None)
Quarter: 2004Q4

REPORT INFORMATION
  Report Type: 
  Country: None (occurrence: None)
  Receive Date: 20041108
  Receipt Date: 20041028
  Transmission Date: 20050328
  Serious: Yes (Hospitalization, Other)
  Sender: FDA-Public Use
  Company Number: 2004075239

PATIENT
  Age: 71 Year
  Sex: Female
  Weight: 67.586 kg

DRUGS (18)
  1. NEURONTIN [Suspect]
     Indication: REFLEX SYMPATHETIC DYSTROPHY
     Dosage: ORAL
     Route: 048
     Dates: start: 20040601, end: 20040101
  2. PANTOPRAZOLE (PANTOPRAZOLE) [Concomitant]
  3. MAGNESIUM (MAGNESIUM) [Concomitant]
  4. OXYCODONE HYDROCHLORIDE AND ACETAMINOPHEN [Concomitant]
  5. CLOPIDOGREL BISULFATE [Concomitant]
  6. LOSARTAN POTASSIUM [Concomitant]
  7. FUROSEMIDE [Concomitant]
  8. ISOSORBIDE (ISOSORBIDE) [Concomitant]
  9. POTASSIUM (POTASSIUM) [Concomitant]
  10. SIMVASTATIN [Concomitant]
  11. ESCITALOPRAM (ESCITALOPRAM) [Concomitant]
  12. ASPIRIN [Concomitant]
  13. DIPHENHYDRAMINE HCL [Concomitant]
  14. ALL OTHER THERAPEUTIC PRODUCTS (ALL OTHER THERAPEUTIC PRODUCTS) [Concomitant]
  15. METHYLPHENIDATE HCL [Concomitant]
  16. SERETIDE MITE (FLUTICASONE PROPIONATE, SALMETEROL XINAFOATE) [Concomitant]
  17. OXYGEN (OXYGEN) [Concomitant]
  18. FENTANYL [Concomitant]

REACTIONS (4)
  - CHEST PAIN [None]
  - COMA [None]
  - NAUSEA [None]
  - RENAL FAILURE [None]
